FAERS Safety Report 25206974 (Version 6)
Quarter: 2025Q3

REPORT INFORMATION
  Report Type: Report from Study
  Country: US (occurrence: US)
  Receive Date: 20250417
  Receipt Date: 20250926
  Transmission Date: 20251020
  Serious: Yes (Other)
  Sender: SUNOVION
  Company Number: US-SMPA-2025SPA003518AA

PATIENT
  Age: 70 Year
  Sex: Male

DRUGS (12)
  1. ORGOVYX [Suspect]
     Active Substance: RELUGOLIX
     Indication: Prostate cancer
     Dosage: 120 MG, QD
     Route: 048
     Dates: start: 20250306
  2. ASPIRIN [Concomitant]
     Active Substance: ASPIRIN
  3. Citracal calcium pearls + d3 [Concomitant]
  4. Doterra Balance [Concomitant]
  5. VITAMIN D3 [Concomitant]
     Active Substance: CHOLECALCIFEROL
  6. LUTEIN [Concomitant]
     Active Substance: LUTEIN
  7. ROSUVASTATIN [Concomitant]
     Active Substance: ROSUVASTATIN
  8. HERBALS\TURMERIC [Concomitant]
     Active Substance: HERBALS\TURMERIC
  9. XYZAL [Concomitant]
     Active Substance: LEVOCETIRIZINE DIHYDROCHLORIDE
  10. DIMETHYL SULFONE [Concomitant]
     Active Substance: DIMETHYL SULFONE
  11. AUGMENTIN [Concomitant]
     Active Substance: AMOXICILLIN\CLAVULANATE POTASSIUM
  12. MEDROL [Concomitant]
     Active Substance: METHYLPREDNISOLONE

REACTIONS (11)
  - Metastases to bladder [Unknown]
  - Pollakiuria [Unknown]
  - Micturition urgency [Unknown]
  - Blood urine present [Unknown]
  - Dysuria [Unknown]
  - Cardiac disorder [Unknown]
  - Diarrhoea [Unknown]
  - Hot flush [Unknown]
  - Arthralgia [Unknown]
  - Fatigue [Unknown]
  - Incorrect dose administered [Unknown]

NARRATIVE: CASE EVENT DATE: 20250623
